FAERS Safety Report 5978918-8 (Version None)
Quarter: 2008Q4

REPORT INFORMATION
  Report Type: 
  Country: None (occurrence: None)
  Receive Date: 20081204
  Receipt Date: 20081126
  Transmission Date: 20090506
  Serious: Yes (Death, Life-Threatening, Hospitalization)
  Sender: FDA-Public Use
  Company Number: PHHO2008RU12882

PATIENT
  Sex: Male
  Weight: 76 kg

DRUGS (3)
  1. TASIGNA [Suspect]
     Indication: CHRONIC MYELOID LEUKAEMIA
     Dosage: 400 MG, BID
     Dates: start: 20080214, end: 20081008
  2. TASIGNA [Suspect]
     Dosage: NO TREATMENT
     Dates: start: 20081009, end: 20081016
  3. TASIGNA [Suspect]
     Dosage: 400 MG BID
     Dates: start: 20081017

REACTIONS (25)
  - ABDOMINAL PAIN [None]
  - ANAEMIA [None]
  - ASTHENIA [None]
  - BLOOD PRESSURE DECREASED [None]
  - BONE PAIN [None]
  - COLITIS ULCERATIVE [None]
  - CROHN'S DISEASE [None]
  - DIARRHOEA [None]
  - DYSPNOEA [None]
  - FAECES DISCOLOURED [None]
  - FATIGUE [None]
  - GASTRODUODENITIS [None]
  - GASTROINTESTINAL HAEMORRHAGE [None]
  - GINGIVAL BLEEDING [None]
  - HAEMOGLOBIN DECREASED [None]
  - MARROW HYPERPLASIA [None]
  - MELAENA [None]
  - NAUSEA [None]
  - PLATELET COUNT DECREASED [None]
  - SCLERAL HAEMORRHAGE [None]
  - SERUM FERRITIN DECREASED [None]
  - SKIN HAEMORRHAGE [None]
  - SYNCOPE [None]
  - TACHYCARDIA [None]
  - THROMBOCYTOPENIA [None]
